FAERS Safety Report 23393520 (Version 1)
Quarter: 2024Q1

REPORT INFORMATION
  Report Type: Spontaneous
  Country: US (occurrence: US)
  Receive Date: 20240111
  Receipt Date: 20240111
  Transmission Date: 20240409
  Serious: No
  Sender: FDA-Public Use
  Company Number: US-KYOWAKIRIN-2024KK000236

PATIENT

DRUGS (1)
  1. CRYSVITA [Suspect]
     Active Substance: BUROSUMAB-TWZA
     Indication: Hypophosphataemia
     Dosage: 40 MG, 1X/2 WEEKS
     Route: 058
     Dates: start: 20210809

REACTIONS (2)
  - Osteotomy [Unknown]
  - Product use in unapproved indication [Not Recovered/Not Resolved]

NARRATIVE: CASE EVENT DATE: 20210809
